FAERS Safety Report 25801587 (Version 1)
Quarter: 2025Q3

REPORT INFORMATION
  Report Type: Report from Study
  Country: US (occurrence: US)
  Receive Date: 20250915
  Receipt Date: 20250915
  Transmission Date: 20251020
  Serious: No
  Sender: SUNOVION
  Company Number: US-SUMITOMO PHARMA SWITZERLAND GMBH-2025SPA011461

PATIENT
  Age: 74 Year
  Sex: Male

DRUGS (3)
  1. ORGOVYX [Suspect]
     Active Substance: RELUGOLIX
     Indication: Prostate cancer
     Route: 048
  2. ORGOVYX [Suspect]
     Active Substance: RELUGOLIX
     Route: 048
  3. MOUNJARO [Concomitant]
     Active Substance: TIRZEPATIDE

REACTIONS (8)
  - Bradyphrenia [Unknown]
  - COVID-19 [Unknown]
  - Somnolence [Unknown]
  - Electric shock sensation [Unknown]
  - Laboratory test abnormal [Unknown]
  - Hyperhidrosis [Unknown]
  - Hot flush [Unknown]
  - Feeling hot [Unknown]
